FAERS Safety Report 14408067 (Version 1)
Quarter: 2018Q1

REPORT INFORMATION
  Report Type: Spontaneous
  Country: FR (occurrence: FR)
  Receive Date: 20180118
  Receipt Date: 20180118
  Transmission Date: 20180509
  Serious: Yes (Hospitalization)
  Sender: FDA-Public Use
  Company Number: FR-PFIZER INC-2018021574

PATIENT
  Age: 54 Year
  Sex: Female

DRUGS (1)
  1. VENLAFAXINE HCL [Suspect]
     Active Substance: VENLAFAXINE HYDROCHLORIDE
     Indication: PRODUCT USED FOR UNKNOWN INDICATION
     Dosage: 75 MG, UNK
     Route: 065
     Dates: start: 201610

REACTIONS (8)
  - Somnolence [Unknown]
  - Paraesthesia [Recovered/Resolved]
  - Diaphragmalgia [Unknown]
  - Palpitations [Recovering/Resolving]
  - Hot flush [Recovering/Resolving]
  - Abdominal pain upper [Unknown]
  - Abdominal pain [Unknown]
  - Gamma-glutamyltransferase increased [Unknown]
